FAERS Safety Report 6230037-1 (Version None)
Quarter: 2009Q2

REPORT INFORMATION
  Report Type: 
  Country: None (occurrence: None)
  Receive Date: 20090615
  Receipt Date: 20090605
  Transmission Date: 20091009
  Serious: Yes (Other)
  Sender: FDA-Public Use
  Company Number: CL-PFIZER INC-2009223773

PATIENT
  Age: 41 Year

DRUGS (1)
  1. CELEBRA [Suspect]
     Indication: PAIN
     Dosage: 200 MG, UNK

REACTIONS (3)
  - ANAPHYLACTIC SHOCK [None]
  - HYPERSENSITIVITY [None]
  - URTICARIA [None]
